FAERS Safety Report 7020915-8 (Version None)
Quarter: 2010Q3

REPORT INFORMATION
  Report Type: 
  Country: None (occurrence: None)
  Receive Date: 20100929
  Receipt Date: 20100921
  Transmission Date: 20110219
  Serious: Yes (Other)
  Sender: FDA-Public Use
  Company Number: BR-PFIZER INC-2010069331

PATIENT
  Age: 68 Year
  Sex: Female
  Weight: 74 kg

DRUGS (9)
  1. CHAMPIX [Suspect]
     Indication: SMOKING CESSATION THERAPY
     Dosage: 0.5 MG, 1X/DAY
     Route: 048
     Dates: start: 20100531
  2. CHAMPIX [Suspect]
     Dosage: 1 MG, 2X/DAY
     Route: 048
     Dates: end: 20100701
  3. BUDESONIDE/FORMOTEROL FUMARATE [Concomitant]
     Indication: BRONCHITIS
     Dosage: 12/400 MG ONCE DAILY
  4. AZITROMICINA [Concomitant]
     Dosage: UNK
  5. SPIRIVA [Concomitant]
     Indication: BRONCHITIS
     Dosage: 18 MG, 2X/DAY
  6. ACETYLCYSTEINE [Concomitant]
     Indication: BRONCHITIS
     Dosage: 600 MG, 1X/DAY
  7. BEROTEC [Concomitant]
     Indication: BRONCHITIS
     Dosage: 0.25 MG, UNK
  8. ATROVENT [Concomitant]
     Indication: BRONCHITIS
     Dosage: 0.25 MG, UNK
  9. OXYGEN [Concomitant]
     Dosage: UNK

REACTIONS (3)
  - APHONIA [None]
  - BRONCHITIS [None]
  - HEART RATE INCREASED [None]
